FAERS Safety Report 12976617 (Version 1)
Quarter: 2016Q4

REPORT INFORMATION
  Report Type: Spontaneous
  Country: US (occurrence: US)
  Receive Date: 20161127
  Receipt Date: 20161127
  Transmission Date: 20170207
  Serious: Yes (Other)
  Sender: FDA-Public Use
  Company Number: US-ALEMBIC PHARMACUETICALS LIMITED-2016SCAL000938

PATIENT

DRUGS (8)
  1. FOSCARNET [Concomitant]
     Active Substance: FOSCARNET
     Dosage: UNK
  2. POSACONAZOLE [Concomitant]
     Active Substance: POSACONAZOLE
     Indication: BRONCHOPULMONARY ASPERGILLOSIS
     Dosage: UNK
  3. MYCOPHENOLATE MOFETIL. [Concomitant]
     Active Substance: MYCOPHENOLATE MOFETIL
     Indication: GRAFT VERSUS HOST DISEASE IN SKIN
     Dosage: UNK
  4. LEFLUNOMIDE. [Suspect]
     Active Substance: LEFLUNOMIDE
     Indication: CYTOMEGALOVIRUS INFECTION
     Dosage: 30 MG, QD, INITIAL DOSE
  5. FOSCARNET [Concomitant]
     Active Substance: FOSCARNET
     Indication: RENAL IMPAIRMENT
     Dosage: 40 MG/KG/DOSE, EVERY 12 H
  6. LEFLUNOMIDE. [Suspect]
     Active Substance: LEFLUNOMIDE
     Dosage: FOLLOWED BY 40 MG/DAY THEREAFTER
  7. CIDOFOVIR. [Concomitant]
     Active Substance: CIDOFOVIR
     Indication: CYTOMEGALOVIRUS INFECTION
     Dosage: 5 MG/KG, UNK
  8. CIDOFOVIR. [Concomitant]
     Active Substance: CIDOFOVIR
     Indication: RENAL IMPAIRMENT
     Dosage: 3 MG/KG, UNK

REACTIONS (3)
  - Cytomegalovirus viraemia [Unknown]
  - Off label use [Unknown]
  - Therapeutic response unexpected [Unknown]
